FAERS Safety Report 7272082-3 (Version None)
Quarter: 2011Q1

REPORT INFORMATION
  Report Type: 
  Country: None (occurrence: None)
  Receive Date: 20110203
  Receipt Date: 20110126
  Transmission Date: 20110831
  Serious: Yes (Hospitalization)
  Sender: FDA-Public Use
  Company Number: US-NOVOPROD-322266

PATIENT
  Sex: Female
  Weight: 102.4 kg

DRUGS (6)
  1. THYROID TAB [Concomitant]
     Indication: HYPOTHYROIDISM
     Dosage: UNK
  2. LEVOTHYROXINE [Concomitant]
     Indication: HYPOTHYROIDISM
     Dosage: 120 UG, QD
  3. METANX [Concomitant]
     Indication: PRODUCT USED FOR UNKNOWN INDICATION
     Dosage: FOUR TIMES PER WEEK
  4. VITAMIN D3-HEVERT [Concomitant]
     Indication: VITAMIN D DEFICIENCY
     Dosage: 5 GTT, QD
  5. NORDITROPIN NORDIFLEX [Suspect]
     Indication: GROWTH HORMONE DEFICIENCY
     Dosage: QD
     Route: 058
     Dates: start: 20080401
  6. NORDITROPIN NORDIFLEX [Suspect]
     Indication: LYMPHOCYTIC HYPOPHYSITIS
     Dosage: 0.05 MG, BIW
     Route: 058

REACTIONS (1)
  - PITUITARY TUMOUR BENIGN [None]
